FAERS Safety Report 18050181 (Version 1)
Quarter: 2020Q3

REPORT INFORMATION
  Report Type: Other
  Country: CA (occurrence: CA)
  Receive Date: 20200721
  Receipt Date: 20200721
  Transmission Date: 20201103
  Serious: Yes (Other)
  Sender: FDA-Public Use
  Company Number: CA-ROCHE-2644839

PATIENT
  Age: 80 Year
  Sex: Female

DRUGS (3)
  1. ACTEMRA [Suspect]
     Active Substance: TOCILIZUMAB
     Indication: RHEUMATOID ARTHRITIS
     Dosage: 4 MG/KG   MILLIGRAM(S)/KILOGRAM, NO PIRS RECEIVED. DOSAGE BASED ON CURRENT WEIGHT.
     Route: 042
     Dates: start: 20190613, end: 20191213
  2. ACTEMRA [Suspect]
     Active Substance: TOCILIZUMAB
     Dosage: DRUG DOSE FIRST ADMINISTERED IS 4 MG/KG   MILLIGRAM(S)/KILOGRAM,NO PIRS RECEIVED. DOSAGE BASED ON CU
     Route: 042
     Dates: start: 20200522
  3. ACTEMRA [Suspect]
     Active Substance: TOCILIZUMAB
     Indication: RHEUMATOID ARTHRITIS
     Route: 058
     Dates: start: 20200113, end: 20200508

REACTIONS (1)
  - Mastitis [Recovered/Resolved]

NARRATIVE: CASE EVENT DATE: 20200705
